FAERS Safety Report 12241720 (Version 1)
Quarter: 2016Q2

REPORT INFORMATION
  Report Type: Spontaneous
  Country: IT (occurrence: IT)
  Receive Date: 20160406
  Receipt Date: 20160406
  Transmission Date: 20160815
  Serious: Yes (Other)
  Sender: FDA-Public Use
  Company Number: IT-WATSON-2016-06315

PATIENT
  Age: 59 Year
  Sex: Female

DRUGS (9)
  1. EUTIROX [Suspect]
     Active Substance: LEVOTHYROXINE SODIUM
     Indication: DRUG ABUSE
     Dosage: 10 DF, TOTAL
     Route: 048
  2. ZARELIS [Suspect]
     Active Substance: VENLAFAXINE HYDROCHLORIDE
     Indication: DRUG ABUSE
     Dosage: 14 DF, TOTAL
     Route: 048
  3. AMISULPRIDE MYLAN [Suspect]
     Active Substance: AMISULPRIDE
     Indication: DRUG ABUSE
     Dosage: 2000 MG, TOTAL
     Route: 048
  4. XEPLION [Concomitant]
     Active Substance: PALIPERIDONE PALMITATE
     Indication: SCHIZOPHRENIA
     Dosage: 1 DF, ONCE A MONTH
     Route: 030
  5. EUTIROX [Suspect]
     Active Substance: LEVOTHYROXINE SODIUM
     Indication: DRUG ABUSE
     Dosage: 50 DF, TOTAL
     Route: 048
  6. LEVOFLOXACINA ACTAVIS [Suspect]
     Active Substance: LEVOFLOXACIN
     Indication: DRUG ABUSE
     Dosage: 5 DF, TOTAL
     Route: 048
  7. OLANZAPINA ACTAVIS [Suspect]
     Active Substance: OLANZAPINE
     Indication: DRUG ABUSE
     Dosage: 700 MG, TOTAL
     Route: 065
  8. SERTRALINE [Concomitant]
     Active Substance: SERTRALINE HYDROCHLORIDE
     Indication: SCHIZOPHRENIA
     Dosage: 50 MG, DAILY
  9. VALSARTAN ACTAVIS [Suspect]
     Active Substance: VALSARTAN
     Indication: DRUG ABUSE
     Dosage: 1680 MG, TOTAL
     Route: 048

REACTIONS (4)
  - Drug abuse [Recovering/Resolving]
  - Intentional self-injury [Recovering/Resolving]
  - Toxicity to various agents [Recovering/Resolving]
  - Sopor [Recovering/Resolving]

NARRATIVE: CASE EVENT DATE: 20160114
